FAERS Safety Report 5808483-7 (Version None)
Quarter: 2008Q3

REPORT INFORMATION
  Report Type: 
  Country: None (occurrence: None)
  Receive Date: 20080710
  Receipt Date: 20080710
  Transmission Date: 20090109
  Serious: Yes (Hospitalization, Other)
  Sender: FDA-Public Use
  Company Number: None

PATIENT
  Age: 51 Year
  Sex: Female
  Weight: 61.2356 kg

DRUGS (1)
  1. CIPRO [Suspect]
     Indication: URINARY TRACT INFECTION
     Dosage: 1 PILLS DAILY
     Dates: start: 20050606, end: 20050609

REACTIONS (11)
  - ARTHRALGIA [None]
  - BLADDER DISORDER [None]
  - ERYTHEMA [None]
  - FIBROMYALGIA [None]
  - GAIT DISTURBANCE [None]
  - GASTRIC DISORDER [None]
  - HYPOAESTHESIA [None]
  - LABORATORY TEST ABNORMAL [None]
  - PAIN [None]
  - PERIPHERAL COLDNESS [None]
  - WEIGHT DECREASED [None]
